APPROVED DRUG PRODUCT: RILUZOLE
Active Ingredient: RILUZOLE
Strength: 50MG
Dosage Form/Route: TABLET;ORAL
Application: A206045 | Product #001 | TE Code: AB
Applicant: KENTON CHEMICALS AND PHARMACEUTICALS CORP
Approved: Dec 9, 2019 | RLD: No | RS: No | Type: RX